FAERS Safety Report 4611045-0 (Version None)
Quarter: 2005Q1

REPORT INFORMATION
  Report Type: 
  Country: None (occurrence: None)
  Receive Date: 20050316
  Receipt Date: 20050316
  Transmission Date: 20050727
  Serious: Yes (Hospitalization)
  Sender: FDA-Public Use
  Company Number: None

PATIENT
  Age: 57 Year
  Sex: Male
  Weight: 102.0593 kg

DRUGS (8)
  1. MORPHINE SULFATE [Suspect]
     Indication: PAIN
     Dosage: 15 MG PO Q 12H
     Route: 048
  2. HYDROCHLOROTHIAZIDE [Concomitant]
  3. LEVOTHYROXINE [Concomitant]
  4. METOPROLOL TARTRATE [Concomitant]
  5. M.V.I. [Concomitant]
  6. QUETIAPINE FUMARATE [Concomitant]
  7. SIMVASTATIN [Concomitant]
  8. VENLAFAXINE [Concomitant]

REACTIONS (6)
  - DEPRESSION [None]
  - DIARRHOEA [None]
  - DRUG WITHDRAWAL SYNDROME [None]
  - HALLUCINATION [None]
  - SNEEZING [None]
  - SUICIDAL IDEATION [None]
